FAERS Safety Report 21068863 (Version 1)
Quarter: 2022Q3

REPORT INFORMATION
  Report Type: Spontaneous
  Country: NL (occurrence: NL)
  Receive Date: 20220712
  Receipt Date: 20220712
  Transmission Date: 20221026
  Serious: Yes (Other)
  Sender: FDA-Public Use
  Company Number: None

PATIENT
  Sex: Male
  Weight: 103 kg

DRUGS (7)
  1. METFORMIN HYDROCHLORIDE [Suspect]
     Active Substance: METFORMIN HYDROCHLORIDE
     Indication: Blood glucose abnormal
     Dosage: 500 MILLIGRAM, BID (2 X PER DAY, 1 TABLET)
     Route: 065
     Dates: start: 20210826
  2. ASIAN GINSENG [Concomitant]
     Active Substance: ASIAN GINSENG
     Dosage: TABLET, 600 MG, 1 X PER DAY 1/2 TABLET)
     Route: 065
  3. METOPROLOL [Concomitant]
     Active Substance: METOPROLOL
     Dosage: TABLET , 47,50 MG, 1 X PER DAY
     Route: 065
  4. ENALAPRIL [Concomitant]
     Active Substance: ENALAPRIL
     Dosage: 20 MILLIGRAM, QD (TABLET, 20 MG, 1 X PER DAY, 1 TABLET)
     Route: 065
  5. BARNIDIPINE HYDROCHLORIDE [Concomitant]
     Active Substance: BARNIDIPINE HYDROCHLORIDE
     Dosage: 10 MILLIGRAM, QD (CAPSULE, 10 MG, 1 X PER DAY, 1 TABLET)
     Route: 065
  6. SPIRONOLACTONE [Concomitant]
     Active Substance: SPIRONOLACTONE
     Dosage: 25 MILLIGRAM, QD (TABLET, 25 MG, 1 X PER DAY, 1 TABLET)
     Route: 065
  7. GINKGO [Concomitant]
     Active Substance: GINKGO
     Dosage: TABLET, 150 MG , 1 X PER DAY, 1/2 TABLET)
     Route: 065

REACTIONS (2)
  - Haemorrhagic diathesis [Not Recovered/Not Resolved]
  - Bleeding time prolonged [Not Recovered/Not Resolved]
